FAERS Safety Report 6937927-2 (Version None)
Quarter: 2010Q3

REPORT INFORMATION
  Report Type: 
  Country: None (occurrence: None)
  Receive Date: 20100824
  Receipt Date: 20100816
  Transmission Date: 20110219
  Serious: No
  Sender: FDA-Public Use
  Company Number: US-BIOGENIDEC-2010BI028422

PATIENT
  Age: 43 Year
  Sex: Male

DRUGS (4)
  1. TYSABRI [Suspect]
     Indication: MULTIPLE SCLEROSIS
     Route: 042
     Dates: start: 20070516, end: 20071004
  2. TYSABRI [Suspect]
     Route: 042
     Dates: start: 20100622
  3. BENADRYL [Concomitant]
     Indication: PREMEDICATION
  4. UNKNOWN MEDICATIONS [Concomitant]
     Indication: PREMEDICATION

REACTIONS (1)
  - FATIGUE [None]
